FAERS Safety Report 24026814 (Version 2)
Quarter: 2024Q3

REPORT INFORMATION
  Report Type: Report from Study
  Country: IT (occurrence: IT)
  Receive Date: 20240628
  Receipt Date: 20240710
  Transmission Date: 20241016
  Serious: No
  Sender: ROCHE
  Company Number: IT-ROCHE-3554279

PATIENT
  Age: 40 Year

DRUGS (1)
  1. ALECTINIB [Suspect]
     Active Substance: ALECTINIB
     Indication: Product used for unknown indication
     Dosage: DOSAGE REDUCED FOR 1 MONTH TO 450 MG TWICE A DAY
     Route: 065

REACTIONS (4)
  - Hypercholesterolaemia [Unknown]
  - Hypertriglyceridaemia [Unknown]
  - Oedema [Not Recovered/Not Resolved]
  - Weight fluctuation [Unknown]
